FAERS Safety Report 8907903 (Version 2)
Quarter: 2012Q4

REPORT INFORMATION
  Report Type: 
  Country: DE (occurrence: DE)
  Receive Date: 20121113
  Receipt Date: 20121226
  Transmission Date: 20130627
  Serious: Yes (Hospitalization)
  Sender: FDA-Public Use
  Company Number: DE-WATSON-2012-19117

PATIENT
  Age: 80 Year
  Sex: Female

DRUGS (1)
  1. ALENDRONATE SODIUM- (UNKNOWN) [Suspect]
     Indication: OSTEOPOROSIS
     Dosage: 70 mg, 1/week
     Route: 048
     Dates: start: 201112, end: 201202

REACTIONS (6)
  - Duodenal ulcer [Recovered/Resolved]
  - Loss of consciousness [Recovered/Resolved]
  - Constipation [Recovered/Resolved]
  - Decreased appetite [Recovered/Resolved]
  - Melaena [Recovered/Resolved]
  - Faeces discoloured [Recovered/Resolved]
